FAERS Safety Report 10927010 (Version 1)
Quarter: 2015Q1

REPORT INFORMATION
  Report Type: Spontaneous
  Country: US (occurrence: US)
  Receive Date: 20150318
  Receipt Date: 20150318
  Transmission Date: 20150721
  Serious: Yes (Hospitalization)
  Sender: FDA-Public Use
  Company Number: US-BRISTOL-MYERS SQUIBB COMPANY-BMS-2015-016395

PATIENT
  Age: 84 Year
  Sex: Female

DRUGS (2)
  1. ASCORBIC ACID W/BETACAROTENE/COPPER/TOCOPHERY [Interacting]
     Active Substance: MINERALS\VITAMINS
     Indication: AGE-RELATED MACULAR DEGENERATION
     Dosage: UNK
     Route: 065
     Dates: start: 20130320
  2. WARFARIN SODIUM. [Suspect]
     Active Substance: WARFARIN SODIUM
     Indication: ATRIAL FIBRILLATION
     Dosage: UNK
     Route: 065
     Dates: start: 201005

REACTIONS (2)
  - Drug interaction [Unknown]
  - Retroperitoneal haemorrhage [Unknown]
